FAERS Safety Report 10215672 (Version 2)
Quarter: 2014Q2

REPORT INFORMATION
  Report Type: Report from Study
  Country: BR (occurrence: BR)
  Receive Date: 20140604
  Receipt Date: 20140604
  Transmission Date: 20141212
  Serious: Yes (Hospitalization, Other)
  Sender: FDA-Public Use
  Company Number: BR-ROCHE-744236

PATIENT
  Sex: Female
  Weight: 57 kg

DRUGS (9)
  1. MABTHERA [Suspect]
     Indication: RHEUMATOID ARTHRITIS
     Dosage: LAST DOSE IN AUG/2013
     Route: 065
     Dates: start: 2009, end: 201005
  2. MABTHERA [Suspect]
     Route: 065
  3. ACTEMRA [Suspect]
     Indication: RHEUMATOID ARTHRITIS
     Route: 042
     Dates: start: 201403
  4. GLUCOSE [Concomitant]
     Indication: PREMEDICATION
     Route: 065
  5. DIPHENHYDRAMINE HYDROCHLORIDE [Concomitant]
     Indication: PREMEDICATION
     Route: 042
  6. PARACETAMOL [Concomitant]
     Indication: PREMEDICATION
     Route: 048
  7. METHOTREXATE [Concomitant]
  8. OMEPRAZOLE [Concomitant]
  9. METHYLPREDNISOLONE [Concomitant]
     Route: 065

REACTIONS (5)
  - Intervertebral disc protrusion [Recovering/Resolving]
  - Appendicitis [Recovering/Resolving]
  - Rheumatoid arthritis [Recovering/Resolving]
  - Musculoskeletal pain [Not Recovered/Not Resolved]
  - Therapeutic response decreased [Unknown]
